FAERS Safety Report 8241016-7 (Version None)
Quarter: 2012Q1

REPORT INFORMATION
  Report Type: 
  Country: None (occurrence: None)
  Receive Date: 20120328
  Receipt Date: 20120319
  Transmission Date: 20120608
  Serious: Yes (Disabling, Other)
  Sender: FDA-Public Use
  Company Number: US-MERCK-1111USA02492

PATIENT
  Age: 56 Year
  Sex: Female

DRUGS (3)
  1. FOSAMAX [Suspect]
     Indication: BONE LOSS
     Route: 048
     Dates: start: 20000101, end: 20060101
  2. BONIVA [Suspect]
     Indication: BONE LOSS
     Route: 065
     Dates: start: 20060101, end: 20100101
  3. HORMONES (UNSPECIFIED) [Concomitant]
     Route: 065
     Dates: start: 19900101, end: 20060301

REACTIONS (9)
  - EXOSTOSIS [None]
  - CEREBROVASCULAR ACCIDENT [None]
  - TEMPOROMANDIBULAR JOINT SYNDROME [None]
  - CARDIAC DISORDER [None]
  - TOOTH DISORDER [None]
  - ORAL DISORDER [None]
  - ORAL INFECTION [None]
  - OSTEONECROSIS OF JAW [None]
  - IMPAIRED HEALING [None]
